FAERS Safety Report 6492633-6 (Version None)
Quarter: 2009Q4

REPORT INFORMATION
  Report Type: 
  Country: None (occurrence: None)
  Receive Date: 20091211
  Receipt Date: 20091211
  Transmission Date: 20100525
  Serious: Yes (Other)
  Sender: FDA-Public Use
  Company Number: None

PATIENT
  Sex: Female
  Weight: 43.9989 kg

DRUGS (28)
  1. BONIVA [Suspect]
     Indication: OSTEOPOROSIS
     Dosage: 3 ML EVERY 3 MO.
     Dates: start: 20070412, end: 20090903
  2. RESTASIS [Concomitant]
  3. PREVACID [Concomitant]
  4. CITRUCEL [Concomitant]
  5. MIRALAX (GLYCOLAX) [Concomitant]
  6. CELEBREX [Concomitant]
  7. SALAGEN (PILOCARPINE) [Concomitant]
  8. PLAQUENIL [Concomitant]
  9. BONIVA INJECTION ONCE EVERY THREE MONTHS [Concomitant]
  10. LIPITOR [Concomitant]
  11. VITAMIN D [Concomitant]
  12. KLONOPIN (CLONAZEPAN) [Concomitant]
  13. MIRAPEX [Concomitant]
  14. LYRICA [Concomitant]
  15. WELLBUTRIN (BUPROPEON SR) [Concomitant]
  16. SEREOQUEL [Concomitant]
  17. LAMICTAL [Concomitant]
  18. ESTRACE [Concomitant]
  19. ACIDOPHILIS PROBIOLIC CAPSULES [Concomitant]
  20. CLINDAMYACIN [Concomitant]
  21. ACT TOTAL CARE ANTICAVITY FLUORIDE RINSE [Concomitant]
  22. CHLORHEXIDINE GLUCONATE [Concomitant]
  23. MULTI-VITAMIN [Concomitant]
  24. VIACTIVE CHEWS [Concomitant]
  25. ESGIC [Concomitant]
  26. RHINOCORT AQUA NASAL SPRAY [Concomitant]
  27. TYLENOL (CAPLET) [Concomitant]
  28. C PAP W/HUMIDIFIER AT NIGHT [Concomitant]

REACTIONS (7)
  - DENTAL CARIES [None]
  - HYPOPHAGIA [None]
  - INFECTION [None]
  - TOOTH ABSCESS [None]
  - TOOTH FRACTURE [None]
  - TOOTH INFECTION [None]
  - TOOTH LOSS [None]
